FAERS Safety Report 7701107-3 (Version None)
Quarter: 2011Q3

REPORT INFORMATION
  Report Type: 
  Country: None (occurrence: None)
  Receive Date: 20110819
  Receipt Date: 20110819
  Transmission Date: 20111222
  Serious: No
  Sender: FDA-Public Use
  Company Number: None

PATIENT
  Age: 60 Year
  Sex: Male

DRUGS (11)
  1. METFORMIN HCL [Concomitant]
  2. ZOLDIPEM [Concomitant]
  3. ATENOLOL [Concomitant]
  4. PREDNISONE TAB [Concomitant]
  5. ALKERAN [Concomitant]
  6. REVLIMID [Suspect]
     Indication: MULTIPLE MYELOMA
     Dosage: 10MG QDX21D/28D ORALLY
     Route: 048
     Dates: start: 20100201, end: 20110701
  7. AMLODIPINE [Concomitant]
  8. ZOCOR [Concomitant]
  9. WARFARIN SODIUM [Concomitant]
  10. GLIPIZIDE [Concomitant]
  11. NOVOLIN 70/30 [Concomitant]

REACTIONS (1)
  - NEUTROPENIA [None]
